FAERS Safety Report 14648006 (Version 1)
Quarter: 2018Q1

REPORT INFORMATION
  Report Type: Report from Study
  Country: KR (occurrence: KR)
  Receive Date: 20180316
  Receipt Date: 20180316
  Transmission Date: 20180509
  Serious: Yes (Other)
  Sender: FDA-Public Use
  Company Number: KR-AMGEN-KORSL2018010005

PATIENT
  Age: 67 Year
  Sex: Female

DRUGS (1)
  1. PROLIA [Suspect]
     Active Substance: DENOSUMAB
     Indication: OSTEOPOROSIS
     Dosage: UNK
     Route: 065
     Dates: start: 20171226

REACTIONS (5)
  - Joint effusion [Unknown]
  - Arthralgia [Unknown]
  - Chest pain [Recovered/Resolved]
  - Joint swelling [Unknown]
  - Cough [Recovered/Resolved]

NARRATIVE: CASE EVENT DATE: 20171226
